FAERS Safety Report 21772931 (Version 2)
Quarter: 2022Q4

REPORT INFORMATION
  Report Type: Report from Study
  Country: AU (occurrence: AU)
  Receive Date: 20221223
  Receipt Date: 20221227
  Transmission Date: 20230113
  Serious: Yes (Hospitalization)
  Sender: FDA-Public Use
  Company Number: AU-Replimune Inc.-AU-RPL-22-00105

PATIENT
  Age: 50 Year
  Sex: Male

DRUGS (7)
  1. CEMIPLIMAB [Suspect]
     Active Substance: CEMIPLIMAB
     Indication: Squamous cell carcinoma of skin
     Dosage: 350 MILLIGRAM. EVERY 3 WEEKS
     Route: 042
     Dates: start: 20220419, end: 20220621
  2. CEMIPLIMAB [Suspect]
     Active Substance: CEMIPLIMAB
     Dosage: 350 MILLIGRAM, EVERY 3 WEEKS
     Route: 042
     Dates: start: 20220712
  3. SERINE/THREONINE-PROTEIN KINASE 19 [Suspect]
     Active Substance: SERINE/THREONINE-PROTEIN KINASE 19
     Indication: Squamous cell carcinoma of skin
     Dosage: 1 X 10^6 PFU/ML, TOTAL VOLUME 8 ML
     Route: 036
     Dates: start: 20220329, end: 20220329
  4. SERINE/THREONINE-PROTEIN KINASE 19 [Suspect]
     Active Substance: SERINE/THREONINE-PROTEIN KINASE 19
     Dosage: 1 X 10^6 PFU/ML, ONCE IN 3 WEEKS, TOTAL VOLUME 5 ML
     Route: 036
     Dates: start: 20220531, end: 20220712
  5. ACETAMINOPHEN\CODEINE PHOSPHATE\DOXYLAMINE SUCCINATE [Concomitant]
     Active Substance: ACETAMINOPHEN\CODEINE PHOSPHATE\DOXYLAMINE SUCCINATE
     Indication: Arthralgia
     Dosage: 2 PRN
     Route: 048
     Dates: start: 2020
  6. IBUPROFEN [Concomitant]
     Active Substance: IBUPROFEN
     Indication: Pain
     Dosage: 2, PRN
     Route: 048
     Dates: start: 20220310
  7. ACETAMINOPHEN [Concomitant]
     Active Substance: ACETAMINOPHEN
     Indication: Pain
     Dosage: 2, PRN
     Route: 048
     Dates: start: 20220329

REACTIONS (1)
  - Groin abscess [Recovered/Resolved]

NARRATIVE: CASE EVENT DATE: 20220614
